FAERS Safety Report 7514185-1 (Version None)
Quarter: 2011Q2

REPORT INFORMATION
  Report Type: 
  Country: None (occurrence: None)
  Receive Date: 20110531
  Receipt Date: 20110523
  Transmission Date: 20111010
  Serious: Yes (Other)
  Sender: FDA-Public Use
  Company Number: US-SANOFI-AVENTIS-2011SA032894

PATIENT
  Sex: Female

DRUGS (3)
  1. LANTUS [Suspect]
     Indication: TYPE 1 DIABETES MELLITUS
     Dosage: DOSE:18 UNIT(S)
     Route: 058
  2. NOVOLOG [Concomitant]
  3. SOLOSTAR [Suspect]
     Indication: TYPE 2 DIABETES MELLITUS

REACTIONS (2)
  - HAND FRACTURE [None]
  - FALL [None]
